FAERS Safety Report 23449739 (Version 1)
Quarter: 2024Q1

REPORT INFORMATION
  Report Type: Spontaneous
  Country: US (occurrence: US)
  Receive Date: 20240129
  Receipt Date: 20240129
  Transmission Date: 20240410
  Serious: Yes (Other)
  Sender: FDA-Public Use
  Company Number: US-SPECGX-T202400505

PATIENT
  Age: 25 Year
  Sex: Male

DRUGS (2)
  1. FENTANYL CITRATE [Suspect]
     Active Substance: FENTANYL CITRATE
     Indication: Product used for unknown indication
     Dosage: UNK
     Route: 065
  2. METHADONE [Suspect]
     Active Substance: METHADONE HYDROCHLORIDE
     Indication: Product used for unknown indication
     Dosage: 75 MILLIGRAM, QD
     Route: 065

REACTIONS (7)
  - Road traffic accident [Unknown]
  - Impaired driving ability [Unknown]
  - Substance use [Unknown]
  - Hypotonia [Unknown]
  - Eyelid ptosis [Unknown]
  - Disturbance in attention [Unknown]
  - Miosis [Unknown]
